FAERS Safety Report 9871531 (Version 9)
Quarter: 2015Q4

REPORT INFORMATION
  Report Type: Report from Study
  Country: US (occurrence: US)
  Receive Date: 20140205
  Receipt Date: 20151111
  Transmission Date: 20160305
  Serious: Yes (Death, Hospitalization, Other)
  Sender: FDA-Public Use
  Company Number: US-ALEXION-A201400284

PATIENT
  Age: 67 Year
  Sex: Female

DRUGS (1)
  1. SOLIRIS [Suspect]
     Active Substance: ECULIZUMAB
     Indication: HAEMOLYTIC URAEMIC SYNDROME
     Dosage: 1200 MG, Q2W
     Route: 042
     Dates: start: 20131102

REACTIONS (22)
  - Compression fracture [Unknown]
  - Laceration [Unknown]
  - Back pain [Unknown]
  - Infection [Unknown]
  - Atelectasis [Unknown]
  - Renal impairment [Recovering/Resolving]
  - Respiratory failure [Not Recovered/Not Resolved]
  - Blood urea abnormal [Recovering/Resolving]
  - Platelet count abnormal [Unknown]
  - Lung disorder [Unknown]
  - Sepsis [Recovered/Resolved]
  - Death [Fatal]
  - Pneumonia [Recovered/Resolved]
  - Hallucination [Recovered/Resolved]
  - Urinary tract infection [Recovered/Resolved]
  - Renal disorder [Unknown]
  - Fall [Unknown]
  - Infection [Recovered/Resolved]
  - Hypoxia [Unknown]
  - Sepsis [Recovered/Resolved]
  - Confusional state [Recovering/Resolving]
  - Pneumonia [Recovered/Resolved]

NARRATIVE: CASE EVENT DATE: 20140120
